FAERS Safety Report 8697721 (Version 2)
Quarter: 2013Q4

REPORT INFORMATION
  Report Type: Spontaneous
  Country: US (occurrence: US)
  Receive Date: 20120801
  Receipt Date: 20131101
  Transmission Date: 20140711
  Serious: Yes (Hospitalization, Other)
  Sender: FDA-Public Use
  Company Number: US-MSD-1207USA010537

PATIENT
  Age: 61 Year
  Sex: Male

DRUGS (1)
  1. ZOCOR [Suspect]
     Dosage: 20 MG, QD
     Route: 048

REACTIONS (1)
  - Rhabdomyolysis [Unknown]
